FAERS Safety Report 6891150-9 (Version None)
Quarter: 2010Q3

REPORT INFORMATION
  Report Type: 
  Country: None (occurrence: None)
  Receive Date: 20100731
  Receipt Date: 20090615
  Transmission Date: 20110219
  Serious: Yes (Other)
  Sender: FDA-Public Use
  Company Number: US-PFIZER INC-2009187313

PATIENT
  Sex: Male
  Weight: 99 kg

DRUGS (12)
  1. LIPITOR [Suspect]
     Indication: CORONARY ARTERY DISEASE
     Dosage: 40 MG, 1X/DAY
     Dates: start: 20051001
  2. LIPITOR [Suspect]
     Indication: LIPIDS INCREASED
     Dosage: 20 MG, 1X/DAY
     Dates: start: 20020426
  3. HYDROCHLOROTHIAZIDE [Concomitant]
     Dosage: UNK
  4. WELLBUTRIN [Concomitant]
     Indication: DEPRESSION
     Dosage: UNK
  5. WELLBUTRIN [Concomitant]
     Indication: ANXIETY
  6. COZAAR [Concomitant]
     Dosage: 25 MG, 2X/DAY
  7. GLIPIZIDE [Concomitant]
     Indication: TYPE 2 DIABETES MELLITUS
     Dosage: 10 MG, 2X/DAY
  8. POTASSIUM [Concomitant]
     Dosage: UNK
  9. OMEPRAZOLE [Concomitant]
     Dosage: 20 MG, AS NEEDED
  10. COLCHICINE [Concomitant]
     Dosage: 25 MG, AS NEEDED
  11. ACETYLSALICYLIC ACID [Concomitant]
     Dosage: UNK
  12. VIAGRA [Concomitant]
     Dosage: UNK

REACTIONS (5)
  - BLOOD TRIGLYCERIDES INCREASED [None]
  - LIPIDS ABNORMAL [None]
  - MEDICATION RESIDUE [None]
  - TENDON RUPTURE [None]
  - WRONG TECHNIQUE IN DRUG USAGE PROCESS [None]
